FAERS Safety Report 21097362 (Version 4)
Quarter: 2022Q3

REPORT INFORMATION
  Report Type: Spontaneous
  Country: JP (occurrence: JP)
  Receive Date: 20220719
  Receipt Date: 20220831
  Transmission Date: 20221027
  Serious: Yes (Hospitalization, Other)
  Sender: FDA-Public Use
  Company Number: JP-NOVARTISPH-NVSJ2021JP308297

PATIENT
  Age: 56 Year
  Sex: Male

DRUGS (166)
  1. VILDAGLIPTIN [Suspect]
     Active Substance: VILDAGLIPTIN
     Indication: Type 2 diabetes mellitus
     Dosage: UNK
     Route: 048
  2. VILDAGLIPTIN [Suspect]
     Active Substance: VILDAGLIPTIN
     Dosage: 100 MG
     Route: 048
  3. VILDAGLIPTIN [Suspect]
     Active Substance: VILDAGLIPTIN
     Dosage: 50 MG
     Route: 048
  4. VALSARTAN [Suspect]
     Active Substance: VALSARTAN
     Indication: Product used for unknown indication
     Dosage: 40 MG
     Route: 048
  5. VALSARTAN [Suspect]
     Active Substance: VALSARTAN
     Dosage: 80 MG
     Route: 048
  6. VALSARTAN [Suspect]
     Active Substance: VALSARTAN
     Dosage: 120 MG
     Route: 048
  7. VALSARTAN [Suspect]
     Active Substance: VALSARTAN
     Dosage: 40 MG
     Route: 048
  8. METGLUCO [Suspect]
     Active Substance: METFORMIN HYDROCHLORIDE
     Indication: Type 2 diabetes mellitus
     Dosage: 2000 MG
     Route: 048
  9. METGLUCO [Suspect]
     Active Substance: METFORMIN HYDROCHLORIDE
     Dosage: UNK
     Route: 048
  10. METGLUCO [Suspect]
     Active Substance: METFORMIN HYDROCHLORIDE
     Dosage: 2250 MG
     Route: 048
  11. METGLUCO [Suspect]
     Active Substance: METFORMIN HYDROCHLORIDE
     Dosage: 500 MG
     Route: 048
     Dates: end: 202108
  12. METGLUCO [Suspect]
     Active Substance: METFORMIN HYDROCHLORIDE
     Dosage: 1000 MG
     Route: 048
     Dates: end: 20210901
  13. PEROSPIRONE HYDROCHLORIDE [Suspect]
     Active Substance: PEROSPIRONE HYDROCHLORIDE
     Indication: Hallucination, auditory
     Dosage: 8 MG, BID
     Route: 048
  14. PEROSPIRONE HYDROCHLORIDE [Suspect]
     Active Substance: PEROSPIRONE HYDROCHLORIDE
     Indication: Anxiety
     Dosage: 8 UNK
     Route: 048
  15. PEROSPIRONE HYDROCHLORIDE [Suspect]
     Active Substance: PEROSPIRONE HYDROCHLORIDE
     Indication: Physical deconditioning
     Dosage: 16 MG
     Route: 048
     Dates: start: 20220110
  16. PEROSPIRONE HYDROCHLORIDE [Suspect]
     Active Substance: PEROSPIRONE HYDROCHLORIDE
     Indication: Hallucination
     Dosage: 4 MG, BID
     Route: 048
  17. PEROSPIRONE HYDROCHLORIDE [Suspect]
     Active Substance: PEROSPIRONE HYDROCHLORIDE
     Indication: Stupor
     Dosage: 4 MG
     Route: 048
     Dates: start: 20220203
  18. PEROSPIRONE HYDROCHLORIDE [Suspect]
     Active Substance: PEROSPIRONE HYDROCHLORIDE
     Dosage: 16 MG
     Route: 048
  19. PEROSPIRONE HYDROCHLORIDE [Suspect]
     Active Substance: PEROSPIRONE HYDROCHLORIDE
     Dosage: 4 MG, BID
     Route: 048
  20. PEROSPIRONE HYDROCHLORIDE [Suspect]
     Active Substance: PEROSPIRONE HYDROCHLORIDE
     Dosage: 4 MG
     Route: 048
  21. PEROSPIRONE HYDROCHLORIDE [Suspect]
     Active Substance: PEROSPIRONE HYDROCHLORIDE
     Dosage: 4 MG, BID
     Route: 048
  22. PEROSPIRONE HYDROCHLORIDE [Suspect]
     Active Substance: PEROSPIRONE HYDROCHLORIDE
     Dosage: 4 MG
     Route: 048
  23. PEROSPIRONE HYDROCHLORIDE [Suspect]
     Active Substance: PEROSPIRONE HYDROCHLORIDE
     Dosage: 4 MG, BID
     Route: 048
  24. PEROSPIRONE HYDROCHLORIDE [Suspect]
     Active Substance: PEROSPIRONE HYDROCHLORIDE
     Dosage: 16 MG
     Route: 048
  25. PEROSPIRONE HYDROCHLORIDE [Suspect]
     Active Substance: PEROSPIRONE HYDROCHLORIDE
     Dosage: 4 MG
     Route: 048
     Dates: start: 20220412
  26. PEROSPIRONE HYDROCHLORIDE [Suspect]
     Active Substance: PEROSPIRONE HYDROCHLORIDE
     Dosage: 8 MG
     Route: 048
  27. PEROSPIRONE HYDROCHLORIDE [Suspect]
     Active Substance: PEROSPIRONE HYDROCHLORIDE
     Dosage: 4 MG
     Route: 048
  28. PEROSPIRONE HYDROCHLORIDE [Suspect]
     Active Substance: PEROSPIRONE HYDROCHLORIDE
     Dosage: 4 MG, BID
     Route: 048
  29. PEROSPIRONE HYDROCHLORIDE [Suspect]
     Active Substance: PEROSPIRONE HYDROCHLORIDE
     Dosage: 4 MG
     Route: 048
     Dates: start: 20220425
  30. PEROSPIRONE HYDROCHLORIDE [Suspect]
     Active Substance: PEROSPIRONE HYDROCHLORIDE
     Dosage: 16 MG
     Route: 048
  31. PEROSPIRONE HYDROCHLORIDE [Suspect]
     Active Substance: PEROSPIRONE HYDROCHLORIDE
     Dosage: 4 MG, BID
     Route: 048
     Dates: end: 20220614
  32. PEROSPIRONE HYDROCHLORIDE [Suspect]
     Active Substance: PEROSPIRONE HYDROCHLORIDE
     Dosage: UNK
     Route: 048
  33. PEROSPIRONE HYDROCHLORIDE [Suspect]
     Active Substance: PEROSPIRONE HYDROCHLORIDE
     Dosage: 8 MG
     Route: 048
  34. PEROSPIRONE HYDROCHLORIDE [Suspect]
     Active Substance: PEROSPIRONE HYDROCHLORIDE
     Dosage: 16 MG
     Route: 048
  35. PEROSPIRONE HYDROCHLORIDE [Suspect]
     Active Substance: PEROSPIRONE HYDROCHLORIDE
     Dosage: 8 MG
     Route: 048
  36. PEROSPIRONE HYDROCHLORIDE [Suspect]
     Active Substance: PEROSPIRONE HYDROCHLORIDE
     Dosage: 4 MG
     Route: 048
  37. PEROSPIRONE HYDROCHLORIDE [Suspect]
     Active Substance: PEROSPIRONE HYDROCHLORIDE
     Dosage: 8 MG
     Route: 048
  38. PEROSPIRONE HYDROCHLORIDE [Suspect]
     Active Substance: PEROSPIRONE HYDROCHLORIDE
     Dosage: UNK
     Route: 048
  39. PEROSPIRONE HYDROCHLORIDE [Suspect]
     Active Substance: PEROSPIRONE HYDROCHLORIDE
     Dosage: 12 MG
     Route: 048
     Dates: start: 20220714
  40. PEROSPIRONE HYDROCHLORIDE [Suspect]
     Active Substance: PEROSPIRONE HYDROCHLORIDE
     Dosage: 4 MG, TID
     Route: 048
  41. PEROSPIRONE HYDROCHLORIDE [Suspect]
     Active Substance: PEROSPIRONE HYDROCHLORIDE
     Dosage: 8 MG
     Route: 065
  42. PEROSPIRONE HYDROCHLORIDE [Suspect]
     Active Substance: PEROSPIRONE HYDROCHLORIDE
     Dosage: 16 MG
     Route: 048
     Dates: start: 20220808
  43. PEROSPIRONE HYDROCHLORIDE [Suspect]
     Active Substance: PEROSPIRONE HYDROCHLORIDE
     Dosage: 16 MG
     Route: 048
     Dates: start: 20220822
  44. PEROSPIRONE [Suspect]
     Active Substance: PEROSPIRONE
     Indication: Hallucination, auditory
     Dosage: 4 MG, BID
     Route: 048
  45. PEROSPIRONE [Suspect]
     Active Substance: PEROSPIRONE
     Indication: Persistent depressive disorder
     Dosage: 16 MG
     Route: 048
     Dates: start: 20210909
  46. PEROSPIRONE [Suspect]
     Active Substance: PEROSPIRONE
     Dosage: 4 MG, TID
     Route: 048
     Dates: start: 20210910
  47. PEROSPIRONE [Suspect]
     Active Substance: PEROSPIRONE
     Dosage: 4 MG, QID
     Route: 048
  48. PEROSPIRONE [Suspect]
     Active Substance: PEROSPIRONE
     Dosage: 12 MG
     Route: 048
     Dates: start: 20210917
  49. PEROSPIRONE [Suspect]
     Active Substance: PEROSPIRONE
     Dosage: 4 MG, QID
     Route: 048
  50. PEROSPIRONE [Suspect]
     Active Substance: PEROSPIRONE
     Dosage: 24 MG
     Route: 048
  51. PEROSPIRONE [Suspect]
     Active Substance: PEROSPIRONE
     Dosage: 4 MG, QID
     Route: 048
     Dates: start: 20211012
  52. PEROSPIRONE [Suspect]
     Active Substance: PEROSPIRONE
     Dosage: 20 MG
     Route: 048
     Dates: start: 20211027
  53. PEROSPIRONE [Suspect]
     Active Substance: PEROSPIRONE
     Dosage: 8 MG
     Route: 048
  54. PEROSPIRONE [Suspect]
     Active Substance: PEROSPIRONE
     Dosage: 4 MG
     Route: 048
     Dates: start: 20211101
  55. PEROSPIRONE [Suspect]
     Active Substance: PEROSPIRONE
     Dosage: 16 MG
     Route: 048
  56. PEROSPIRONE [Suspect]
     Active Substance: PEROSPIRONE
     Dosage: 4MG,BID
     Route: 048
  57. AMLODIPINE BESYLATE [Suspect]
     Active Substance: AMLODIPINE BESYLATE
     Indication: Hypertension
     Dosage: 5 MG,TAKEN IN THE MORNING
     Route: 048
  58. AMLODIPINE BESYLATE [Suspect]
     Active Substance: AMLODIPINE BESYLATE
     Dosage: 10 MG
     Route: 048
  59. AMLODIPINE BESYLATE [Suspect]
     Active Substance: AMLODIPINE BESYLATE
     Dosage: 5 MG
     Route: 048
     Dates: start: 20210905
  60. AMLODIPINE BESYLATE [Suspect]
     Active Substance: AMLODIPINE BESYLATE
     Dosage: 2.5 MG
     Route: 048
     Dates: start: 20210912
  61. AMLODIPINE BESYLATE [Suspect]
     Active Substance: AMLODIPINE BESYLATE
     Dosage: 5 MG
     Route: 048
  62. AMLODIPINE BESYLATE [Suspect]
     Active Substance: AMLODIPINE BESYLATE
     Dosage: 7.5 MG
     Route: 048
     Dates: start: 20211019
  63. AMLODIPINE BESYLATE [Suspect]
     Active Substance: AMLODIPINE BESYLATE
     Dosage: 10 MG, 5 CONSECUTIVE SAYS
     Route: 048
  64. AMLODIPINE BESYLATE [Suspect]
     Active Substance: AMLODIPINE BESYLATE
     Dosage: 15 MG
     Route: 048
     Dates: start: 20211027
  65. AMLODIPINE BESYLATE [Suspect]
     Active Substance: AMLODIPINE BESYLATE
     Dosage: 10MG,  5,6 CONSECUTIVE DAYS
     Route: 048
  66. AMLODIPINE BESYLATE [Suspect]
     Active Substance: AMLODIPINE BESYLATE
     Dosage: 7.5 MG
     Route: 048
  67. AMLODIPINE BESYLATE [Suspect]
     Active Substance: AMLODIPINE BESYLATE
     Dosage: 10 MG
     Route: 048
     Dates: start: 20220310
  68. AMLODIPINE BESYLATE [Suspect]
     Active Substance: AMLODIPINE BESYLATE
     Dosage: 2.5 MG
     Route: 048
  69. AMLODIPINE BESYLATE [Suspect]
     Active Substance: AMLODIPINE BESYLATE
     Dosage: 5 MG
     Route: 048
  70. AMLODIPINE BESYLATE [Suspect]
     Active Substance: AMLODIPINE BESYLATE
     Dosage: 10 MG
     Route: 048
  71. AMLODIPINE BESYLATE [Suspect]
     Active Substance: AMLODIPINE BESYLATE
     Dosage: 7.5 MG
     Route: 048
  72. AMLODIPINE BESYLATE [Suspect]
     Active Substance: AMLODIPINE BESYLATE
     Dosage: 12.5 MG
     Route: 048
     Dates: start: 20220610
  73. CYMBALTA [Suspect]
     Active Substance: DULOXETINE HYDROCHLORIDE
     Indication: Diabetes mellitus
     Route: 048
  74. CYMBALTA [Suspect]
     Active Substance: DULOXETINE HYDROCHLORIDE
     Indication: Anxiety disorder
     Dosage: 60 MG,MORNING DOSE
     Route: 048
  75. CYMBALTA [Suspect]
     Active Substance: DULOXETINE HYDROCHLORIDE
     Indication: Irritability
     Dosage: 60 MG,EVENING
     Route: 048
  76. RIVOTRIL [Suspect]
     Active Substance: CLONAZEPAM
     Indication: Stupor
     Dosage: 0.5 MG, QID HALF TABLET
     Route: 048
  77. RIVOTRIL [Suspect]
     Active Substance: CLONAZEPAM
     Indication: Restless legs syndrome
     Dosage: 0.25 MG, 5QD
     Route: 048
     Dates: start: 20211021
  78. RIVOTRIL [Suspect]
     Active Substance: CLONAZEPAM
     Indication: Myoclonus
     Dosage: 0.5MG HALF TABLET
     Route: 048
     Dates: start: 20211101
  79. RIVOTRIL [Suspect]
     Active Substance: CLONAZEPAM
     Indication: Dyspnoea
     Dosage: 0.25 MG, 6QD
     Route: 048
  80. RIVOTRIL [Suspect]
     Active Substance: CLONAZEPAM
     Dosage: 0.5 MG, TID
     Route: 048
  81. RIVOTRIL [Suspect]
     Active Substance: CLONAZEPAM
     Dosage: 0.5 MG, BID
     Route: 048
  82. RIVOTRIL [Suspect]
     Active Substance: CLONAZEPAM
     Dosage: 0.5 MG, TID
     Route: 048
  83. RIVOTRIL [Suspect]
     Active Substance: CLONAZEPAM
     Dosage: 5,6 TABLETS
     Route: 048
     Dates: start: 20220121
  84. RIVOTRIL [Suspect]
     Active Substance: CLONAZEPAM
     Dosage: 0.5 MG, BID
     Route: 048
  85. AZELASTINE [Suspect]
     Active Substance: AZELASTINE
     Indication: Pruritus
     Dosage: 2 MG
     Route: 048
  86. ETHYL LOFLAZEPATE [Suspect]
     Active Substance: ETHYL LOFLAZEPATE
     Indication: Stupor
     Dosage: UNK
     Route: 048
  87. ETHYL LOFLAZEPATE [Suspect]
     Active Substance: ETHYL LOFLAZEPATE
     Indication: Myoclonus
     Dosage: 3 MG
     Route: 048
     Dates: start: 20211027
  88. ETHYL LOFLAZEPATE [Suspect]
     Active Substance: ETHYL LOFLAZEPATE
     Indication: Hallucination, auditory
     Dosage: 2 MG
     Route: 048
  89. ETHYL LOFLAZEPATE [Suspect]
     Active Substance: ETHYL LOFLAZEPATE
     Indication: Insomnia
     Dosage: 1 MG
     Route: 048
  90. ETHYL LOFLAZEPATE [Suspect]
     Active Substance: ETHYL LOFLAZEPATE
     Indication: Anxiety
     Dosage: 2 MG
     Route: 048
  91. ETHYL LOFLAZEPATE [Suspect]
     Active Substance: ETHYL LOFLAZEPATE
     Dosage: 1 MG
     Route: 048
  92. ETHYL LOFLAZEPATE [Suspect]
     Active Substance: ETHYL LOFLAZEPATE
     Dosage: 2 MG
     Route: 048
  93. ETHYL LOFLAZEPATE [Suspect]
     Active Substance: ETHYL LOFLAZEPATE
     Dosage: 1 MG
     Route: 048
  94. ETHYL LOFLAZEPATE [Suspect]
     Active Substance: ETHYL LOFLAZEPATE
     Dosage: 2 MG
     Route: 048
  95. ETHYL LOFLAZEPATE [Suspect]
     Active Substance: ETHYL LOFLAZEPATE
     Dosage: 1 MG
     Route: 048
     Dates: start: 20220616
  96. ETHYL LOFLAZEPATE [Suspect]
     Active Substance: ETHYL LOFLAZEPATE
     Dosage: 1 MG
     Route: 065
  97. ETHYL LOFLAZEPATE [Suspect]
     Active Substance: ETHYL LOFLAZEPATE
     Dosage: 1 MG
     Route: 048
  98. MIRABEGRON [Suspect]
     Active Substance: MIRABEGRON
     Indication: Product used for unknown indication
     Dosage: UNK
     Route: 065
  99. RISPERIDONE [Suspect]
     Active Substance: RISPERIDONE
     Indication: Dyspnoea
     Dosage: 1 MG, BID
     Route: 048
  100. RISPERIDONE [Suspect]
     Active Substance: RISPERIDONE
     Indication: Physical deconditioning
     Dosage: 2 MG, QD
     Route: 048
  101. RISPERIDONE [Suspect]
     Active Substance: RISPERIDONE
     Indication: Abulia
     Dosage: 4 MG
     Route: 048
     Dates: start: 20211102
  102. RISPERIDONE [Suspect]
     Active Substance: RISPERIDONE
     Indication: Anxiety
     Dosage: 1 MG
     Route: 048
  103. RISPERIDONE [Suspect]
     Active Substance: RISPERIDONE
     Indication: Hallucination, auditory
     Dosage: 6 MG
     Route: 048
  104. RISPERIDONE [Suspect]
     Active Substance: RISPERIDONE
     Indication: Persistent depressive disorder
     Dosage: 2 MG
     Route: 048
  105. RISPERIDONE [Suspect]
     Active Substance: RISPERIDONE
     Dosage: 1 DOSAGE FORM
     Route: 048
  106. RISPERIDONE [Suspect]
     Active Substance: RISPERIDONE
     Dosage: 3 DOSAGE FORM
     Route: 048
  107. RISPERIDONE [Suspect]
     Active Substance: RISPERIDONE
     Dosage: 2 MG
     Route: 048
     Dates: start: 20220309, end: 20220310
  108. RISPERIDONE [Suspect]
     Active Substance: RISPERIDONE
     Dosage: 1 MG,PRN
     Route: 048
  109. RISPERIDONE [Suspect]
     Active Substance: RISPERIDONE
     Dosage: UNK MG
     Route: 048
  110. RISPERIDONE [Suspect]
     Active Substance: RISPERIDONE
     Dosage: 2 MG
     Route: 048
  111. RISPERIDONE [Suspect]
     Active Substance: RISPERIDONE
     Dosage: 1 MG
     Route: 048
  112. RISPERIDONE [Suspect]
     Active Substance: RISPERIDONE
     Dosage: 2 MG
     Route: 048
  113. RISPERIDONE [Suspect]
     Active Substance: RISPERIDONE
     Dosage: 1 MG
     Route: 048
  114. RISPERIDONE [Suspect]
     Active Substance: RISPERIDONE
     Dosage: 1 MG, BID, ONE TABLET SHOULD BE TAKEN AT ANY TIME DURING THE DAY WHEN NOT FEELING WELL
     Route: 048
  115. RISPERIDONE [Suspect]
     Active Substance: RISPERIDONE
     Dosage: 1 MG
     Route: 048
  116. RISPERIDONE [Suspect]
     Active Substance: RISPERIDONE
     Dosage: 2 MG
     Route: 048
  117. RISPERIDONE [Suspect]
     Active Substance: RISPERIDONE
     Dosage: 8 MG
     Route: 048
  118. RISPERIDONE [Suspect]
     Active Substance: RISPERIDONE
     Dosage: 2 MG, BID
     Route: 048
  119. RISPERIDONE [Suspect]
     Active Substance: RISPERIDONE
     Dosage: 8 MG
     Route: 048
  120. RISPERIDONE [Suspect]
     Active Substance: RISPERIDONE
     Dosage: 1 MG
     Route: 048
  121. RISPERIDONE [Suspect]
     Active Substance: RISPERIDONE
     Dosage: 2 MG
     Route: 048
  122. RISPERIDONE [Suspect]
     Active Substance: RISPERIDONE
     Dosage: 1 MG
     Route: 048
  123. RISPERIDONE [Suspect]
     Active Substance: RISPERIDONE
     Dosage: 2 MG
     Route: 048
  124. RISPERIDONE [Suspect]
     Active Substance: RISPERIDONE
     Dosage: 4 MG
     Route: 048
     Dates: start: 20220808
  125. RISPERIDONE [Suspect]
     Active Substance: RISPERIDONE
     Dosage: 4 MG
     Route: 048
     Dates: start: 20220822
  126. LITHIUM CARBONATE [Suspect]
     Active Substance: LITHIUM CARBONATE
     Indication: Persistent depressive disorder
     Dosage: 200 MG, BID,IN MORNING AND EVENING
     Route: 048
  127. LITHIUM CARBONATE [Suspect]
     Active Substance: LITHIUM CARBONATE
     Dosage: 400 MG, QD
     Route: 048
  128. LITHIUM CARBONATE [Suspect]
     Active Substance: LITHIUM CARBONATE
     Dosage: 400 MG, BID
     Route: 048
  129. LITHIUM CARBONATE [Suspect]
     Active Substance: LITHIUM CARBONATE
     Dosage: UNK
     Route: 048
  130. LITHIUM CARBONATE [Suspect]
     Active Substance: LITHIUM CARBONATE
     Dosage: 400 MG
     Route: 048
  131. JUVELA [Suspect]
     Active Substance: .ALPHA.-TOCOPHEROL\RETINOL
     Indication: Tardive dyskinesia
     Dosage: 200 MG, TID
     Route: 065
     Dates: start: 20200610
  132. CLONAZEPAM [Suspect]
     Active Substance: CLONAZEPAM
     Indication: Stupor
     Dosage: 1 MG, FROM EVENING TO NIGHT
     Route: 048
  133. CLONAZEPAM [Suspect]
     Active Substance: CLONAZEPAM
     Indication: Myoclonus
     Dosage: UNK
     Route: 048
  134. CLONAZEPAM [Suspect]
     Active Substance: CLONAZEPAM
     Indication: Dyspnoea
     Dosage: 0.5 MG
     Route: 048
  135. CLONAZEPAM [Suspect]
     Active Substance: CLONAZEPAM
     Indication: Musculoskeletal stiffness
     Dosage: 1 MG
     Route: 048
  136. CLONAZEPAM [Suspect]
     Active Substance: CLONAZEPAM
     Indication: Hypomania
     Dosage: 0.5 MG
     Route: 048
  137. CLONAZEPAM [Suspect]
     Active Substance: CLONAZEPAM
     Indication: Anxiety
     Dosage: 1 MG
     Route: 048
  138. CLONAZEPAM [Suspect]
     Active Substance: CLONAZEPAM
     Indication: Insomnia
     Dosage: 1.5 MG
     Route: 048
  139. CLONAZEPAM [Suspect]
     Active Substance: CLONAZEPAM
     Dosage: 1 MG
     Route: 048
  140. CLONAZEPAM [Suspect]
     Active Substance: CLONAZEPAM
     Dosage: 0.5 MG
     Route: 048
  141. CLONAZEPAM [Suspect]
     Active Substance: CLONAZEPAM
     Dosage: 2 MG
     Route: 048
  142. CLONAZEPAM [Suspect]
     Active Substance: CLONAZEPAM
     Dosage: 6 MG
     Route: 048
     Dates: start: 20220417
  143. CLONAZEPAM [Suspect]
     Active Substance: CLONAZEPAM
     Dosage: 2 MG
     Route: 048
  144. CLONAZEPAM [Suspect]
     Active Substance: CLONAZEPAM
     Dosage: 1 MG
     Route: 048
  145. CLONAZEPAM [Suspect]
     Active Substance: CLONAZEPAM
     Dosage: 1.5 MG
     Route: 048
  146. CLONAZEPAM [Suspect]
     Active Substance: CLONAZEPAM
     Dosage: 1 MG, BID
     Route: 048
  147. CLONAZEPAM [Suspect]
     Active Substance: CLONAZEPAM
     Dosage: 0.5 MG, BID
     Route: 065
  148. CLONAZEPAM [Suspect]
     Active Substance: CLONAZEPAM
     Dosage: 2.5 MG
     Route: 048
  149. CLONAZEPAM [Suspect]
     Active Substance: CLONAZEPAM
     Dosage: 1 MG
     Route: 048
     Dates: start: 20220616
  150. CLONAZEPAM [Suspect]
     Active Substance: CLONAZEPAM
     Dosage: 0.5 MG, 5QD
     Route: 048
  151. CLONAZEPAM [Suspect]
     Active Substance: CLONAZEPAM
     Dosage: 1 MG
     Route: 048
  152. CLONAZEPAM [Suspect]
     Active Substance: CLONAZEPAM
     Dosage: 1.5 MG
     Route: 048
  153. CLONAZEPAM [Suspect]
     Active Substance: CLONAZEPAM
     Dosage: 1 MG
     Route: 048
  154. CLONAZEPAM [Suspect]
     Active Substance: CLONAZEPAM
     Dosage: 3 MG
     Route: 048
  155. CLONAZEPAM [Suspect]
     Active Substance: CLONAZEPAM
     Dosage: 5 MG
     Route: 048
  156. DULOXETINE [Concomitant]
     Active Substance: DULOXETINE
     Indication: Product used for unknown indication
     Dosage: 60 MG
     Route: 048
  157. AMARYL [Concomitant]
     Active Substance: GLIMEPIRIDE
     Indication: Product used for unknown indication
     Dosage: 1 MG
     Route: 048
  158. AMARYL [Concomitant]
     Active Substance: GLIMEPIRIDE
     Dosage: 6 MG
     Route: 048
  159. BASEN [Concomitant]
     Indication: Product used for unknown indication
     Dosage: UNK
     Route: 065
  160. ACTOS [Concomitant]
     Active Substance: PIOGLITAZONE HYDROCHLORIDE
     Indication: Product used for unknown indication
     Dosage: UNK
     Route: 065
  161. HYALURONATE SODIUM [Concomitant]
     Active Substance: HYALURONATE SODIUM
     Indication: Product used for unknown indication
     Dosage: UNK
     Route: 065
  162. AZELASTINE HYDROCHLORIDE [Concomitant]
     Active Substance: AZELASTINE HYDROCHLORIDE
     Indication: Product used for unknown indication
     Dosage: UNK MG
     Route: 065
  163. AZUNOL [Concomitant]
     Indication: Product used for unknown indication
     Dosage: 7.5 MG
     Route: 065
  164. FUSIDATE SODIUM [Concomitant]
     Active Substance: FUSIDATE SODIUM
     Indication: Product used for unknown indication
     Dosage: UNK
     Route: 065
  165. FLUNITRAZEPAM [Concomitant]
     Active Substance: FLUNITRAZEPAM
     Indication: Anxiety
     Dosage: UNK
     Route: 065
  166. ISODINE [Concomitant]
     Active Substance: POVIDONE-IODINE
     Indication: Product used for unknown indication
     Dosage: UNK
     Route: 065

REACTIONS (122)
  - Fall [Recovered/Resolved]
  - Parkinsonism [Unknown]
  - Movement disorder [Unknown]
  - Posture abnormal [Unknown]
  - Parkinsonian gait [Unknown]
  - Irritability [Recovered/Resolved]
  - Anxiety [Recovered/Resolved]
  - Depressed level of consciousness [Unknown]
  - Fall [Unknown]
  - Blood glucose increased [Unknown]
  - Vomiting [Unknown]
  - Weight decreased [Unknown]
  - Asterixis [Unknown]
  - Lacunar infarction [Not Recovered/Not Resolved]
  - Grip strength decreased [Unknown]
  - Muscular weakness [Not Recovered/Not Resolved]
  - Dysarthria [Unknown]
  - Tardive dyskinesia [Recovering/Resolving]
  - Hallucination, auditory [Recovering/Resolving]
  - Concomitant disease aggravated [Unknown]
  - Blood pressure increased [Recovered/Resolved]
  - Hyperprolactinaemia [Unknown]
  - Urinary incontinence [Unknown]
  - Hallucination, visual [Unknown]
  - Blood pressure increased [Unknown]
  - Erectile dysfunction [Unknown]
  - Shock [Unknown]
  - Urinary retention [Unknown]
  - Respiratory distress [Unknown]
  - Appendicitis [Unknown]
  - Faecaloma [Unknown]
  - Pyrexia [Unknown]
  - Blood glucose decreased [Unknown]
  - Scoliosis [Unknown]
  - Pain [Unknown]
  - Back pain [Unknown]
  - Pain in extremity [Unknown]
  - Arthralgia [Unknown]
  - Physical deconditioning [Recovered/Resolved]
  - Chest discomfort [Unknown]
  - Anxiety [Recovered/Resolved]
  - Stupor [Recovered/Resolved]
  - Stupor [Recovered/Resolved]
  - Stupor [Recovered/Resolved]
  - Dyspnoea [Recovered/Resolved]
  - Dyspnoea [Recovered/Resolved]
  - Dyspnoea [Recovering/Resolving]
  - Paraesthesia [Recovered/Resolved]
  - Fatigue [Unknown]
  - Productive cough [Unknown]
  - Salivary hypersecretion [Recovered/Resolved]
  - Diplopia [Unknown]
  - Libido decreased [Unknown]
  - Ejaculation disorder [Unknown]
  - Dysstasia [Unknown]
  - Dysphonia [Unknown]
  - Speech disorder [Unknown]
  - Vertebral foraminal stenosis [Unknown]
  - Gait disturbance [Unknown]
  - Irritability [Recovered/Resolved]
  - Somnolence [Recovered/Resolved]
  - Abulia [Recovered/Resolved]
  - Feeling abnormal [Unknown]
  - Propulsive gait [Unknown]
  - Decreased appetite [Recovering/Resolving]
  - Dizziness [Recovered/Resolved]
  - Myoclonus [Recovered/Resolved]
  - Concomitant disease aggravated [Recovered/Resolved]
  - Myoclonus [Unknown]
  - Concomitant disease aggravated [Unknown]
  - Osteoarthritis [Unknown]
  - Persistent depressive disorder [Unknown]
  - Physical deconditioning [Unknown]
  - Skin laceration [Unknown]
  - Muscle tightness [Recovering/Resolving]
  - Musculoskeletal stiffness [Recovered/Resolved]
  - Musculoskeletal stiffness [Recovered/Resolved]
  - Pelvic discomfort [Unknown]
  - Extrapyramidal disorder [Recovered/Resolved]
  - Musculoskeletal stiffness [Recovering/Resolving]
  - Balance disorder [Unknown]
  - Pleurothotonus [Recovered/Resolved]
  - Salivary hypersecretion [Recovered/Resolved]
  - Musculoskeletal discomfort [Unknown]
  - Blood pressure fluctuation [Unknown]
  - Blood pressure decreased [Unknown]
  - Anxiety [Unknown]
  - Insomnia [Unknown]
  - Therapeutic response unexpected [Unknown]
  - Pollakiuria [Unknown]
  - Tremor [Recovered/Resolved]
  - Glycosylated haemoglobin increased [Unknown]
  - Stupor [Unknown]
  - Pruritus [Unknown]
  - Anxiety [Unknown]
  - Blood prolactin increased [Recovering/Resolving]
  - Tinea infection [Unknown]
  - Constipation [Unknown]
  - Depressed mood [Recovered/Resolved]
  - Hypomania [Unknown]
  - Hyperphagia [Unknown]
  - Muscle rigidity [Unknown]
  - Somnolence [Unknown]
  - Salivary hypersecretion [Recovering/Resolving]
  - Pleurothotonus [Recovering/Resolving]
  - Extrapyramidal disorder [Unknown]
  - Dizziness [Unknown]
  - Irritability [Unknown]
  - Tension [Unknown]
  - Oxygen saturation decreased [Unknown]
  - Sexual dysfunction [Unknown]
  - Dehydration [Unknown]
  - Heat illness [Unknown]
  - Mental status changes [Unknown]
  - Dizziness postural [Unknown]
  - Hyperhidrosis [Unknown]
  - Nervousness [Unknown]
  - Hypertonic bladder [Unknown]
  - Faeces soft [Unknown]
  - Orthostatic hypotension [Unknown]
  - Delusion [Unknown]
  - Feeding disorder [Unknown]

NARRATIVE: CASE EVENT DATE: 20050401
